FAERS Safety Report 10388839 (Version 4)
Quarter: 2014Q4

REPORT INFORMATION
  Report Type: Report from Study
  Country: GB (occurrence: GB)
  Receive Date: 20140816
  Receipt Date: 20141029
  Transmission Date: 20150528
  Serious: Yes (Other)
  Sender: FDA-Public Use
  Company Number: GB-ABBVIE-14P-167-1270981-00

PATIENT
  Age: 48 Year
  Sex: Male
  Weight: 79.5 kg

DRUGS (31)
  1. LEVOTHYROXINE SODIUM. [Concomitant]
     Active Substance: LEVOTHYROXINE SODIUM
     Indication: PRODUCT USED FOR UNKNOWN INDICATION
     Dosage: 56 TABLET
     Dates: start: 20140812
  2. TRAMADOL [Concomitant]
     Active Substance: TRAMADOL
     Indication: PRODUCT USED FOR UNKNOWN INDICATION
  3. FRUSEMIDE [Concomitant]
     Active Substance: FUROSEMIDE
     Indication: PRODUCT USED FOR UNKNOWN INDICATION
     Dosage: 120 MG IN THE MORNING
  4. HUMIRA [Suspect]
     Active Substance: ADALIMUMAB
     Indication: RHEUMATOID ARTHRITIS
     Dosage: ONE INJECTION EVERY TWO WEEKS
     Route: 065
     Dates: start: 20140613
  5. VENOFER [Concomitant]
     Active Substance: IRON SUCROSE
     Indication: PRODUCT USED FOR UNKNOWN INDICATION
     Route: 042
     Dates: start: 20120627
  6. VENOFER [Concomitant]
     Active Substance: IRON SUCROSE
     Dates: start: 20120119
  7. DOXAZOSIN [Concomitant]
     Active Substance: DOXAZOSIN\DOXAZOSIN MESYLATE
     Indication: PRODUCT USED FOR UNKNOWN INDICATION
     Dosage: 112 TABLETS
     Dates: start: 20140812
  8. LEVOTHYROXINE SODIUM. [Concomitant]
     Active Substance: LEVOTHYROXINE SODIUM
     Indication: PRODUCT USED FOR UNKNOWN INDICATION
     Dosage: 56 TABLET
     Dates: start: 20140812
  9. FOLIC ACID. [Concomitant]
     Active Substance: FOLIC ACID
     Indication: PRODUCT USED FOR UNKNOWN INDICATION
     Dosage: 16 TABLETS
     Dates: start: 20140812
  10. FUROSEMIDE. [Concomitant]
     Active Substance: FUROSEMIDE
     Indication: PRODUCT USED FOR UNKNOWN INDICATION
     Dosage: 224 TABLETS; THREE AT MORNING, TWO AT LUNCH
     Dates: start: 20140718
  11. ASPIRIN. [Concomitant]
     Active Substance: ASPIRIN
     Indication: CARDIOVASCULAR DISORDER
     Dosage: 28 TABLETS
     Dates: start: 20140718
  12. ALFACALCIDOL [Concomitant]
     Active Substance: ALFACALCIDOL
  13. LANTUS [Concomitant]
     Active Substance: INSULIN GLARGINE
     Indication: PRODUCT USED FOR UNKNOWN INDICATION
     Dosage: 100 UNITS/ML SOLUTION FOR INJECTION
     Route: 050
  14. IRBESARTAN. [Concomitant]
     Active Substance: IRBESARTAN
     Indication: PRODUCT USED FOR UNKNOWN INDICATION
  15. NOVORAPID [Concomitant]
     Active Substance: INSULIN ASPART
     Indication: PRODUCT USED FOR UNKNOWN INDICATION
     Dosage: 100 UNITS/ML SOLUTION FOR INJECTION
     Route: 050
     Dates: start: 20140812
  16. LAXIDO [Concomitant]
     Active Substance: POLYETHYLENE GLYCOL 3350\POTASSIUM CHLORIDE\SODIUM BICARBONATE\SODIUM CHLORIDE
     Indication: PRODUCT USED FOR UNKNOWN INDICATION
     Dosage: 30 SACHETS; TAKE 1 OR 2 SACHETS DAILY
     Dates: start: 20140807
  17. AMLODIPINE [Concomitant]
     Active Substance: AMLODIPINE BESYLATE
     Indication: PRODUCT USED FOR UNKNOWN INDICATION
     Dosage: 56 TABLETS
     Dates: start: 20140718
  18. PARACETAMOL [Concomitant]
     Active Substance: ACETAMINOPHEN
     Indication: PAIN
     Dosage: 100 TABLETS; ONE TO TWO TABLETS UP TO FOUR TIMES
  19. VENOFER [Concomitant]
     Active Substance: IRON SUCROSE
     Route: 042
     Dates: start: 20120418
  20. ATORVASTATIN [Concomitant]
     Active Substance: ATORVASTATIN
     Indication: PRODUCT USED FOR UNKNOWN INDICATION
     Dosage: 56 TABLETS; ONE AT NIGHT (REPLACES SIMVASTATIN)
     Dates: start: 20140616
  21. RAMIPRIL. [Concomitant]
     Active Substance: RAMIPRIL
     Indication: PRODUCT USED FOR UNKNOWN INDICATION
  22. MIRCERA [Concomitant]
     Active Substance: PEGZEREPOETIN ALFA
     Indication: PRODUCT USED FOR UNKNOWN INDICATION
  23. VENOFER [Concomitant]
     Active Substance: IRON SUCROSE
     Dates: start: 20110818
  24. LEVOTHYROXINE SODIUM. [Concomitant]
     Active Substance: LEVOTHYROXINE SODIUM
     Indication: PRODUCT USED FOR UNKNOWN INDICATION
     Dosage: 56 TABLET, 175 MICROGRAM
     Dates: start: 20140812
  25. SODIUM BICARBONATE. [Concomitant]
     Active Substance: SODIUM BICARBONATE
     Indication: PRODUCT USED FOR UNKNOWN INDICATION
     Dosage: 336 CAPSULES, AS DIRECTED
     Dates: start: 20140718
  26. MATRIFEN [Concomitant]
     Active Substance: FENTANYL
     Indication: PRODUCT USED FOR UNKNOWN INDICATION
     Dosage: 25 MICROGRAM/HOUR; 10 PATCH
     Dates: start: 20140718
  27. ALFACALCIDOL [Concomitant]
     Active Substance: ALFACALCIDOL
     Indication: PRODUCT USED FOR UNKNOWN INDICATION
     Dosage: 56 CAPSULE
     Dates: start: 20140718
  28. METHOTREXATE [Concomitant]
     Active Substance: METHOTREXATE
     Indication: PRODUCT USED FOR UNKNOWN INDICATION
     Dosage: 16 TABLETS; 5 MG WEEKLY (TWO TABLETS)
  29. ENBREL [Concomitant]
     Active Substance: ETANERCEPT
     Indication: PRODUCT USED FOR UNKNOWN INDICATION
  30. DEPO-MEDRONE [Concomitant]
     Active Substance: METHYLPREDNISOLONE
     Indication: PRODUCT USED FOR UNKNOWN INDICATION
  31. FRUSEMIDE [Concomitant]
     Active Substance: FUROSEMIDE
     Dosage: 80 MG IN THE EVENING

REACTIONS (6)
  - Depressed mood [Unknown]
  - Rheumatoid arthritis [Not Recovered/Not Resolved]
  - Rheumatoid arthritis [Unknown]
  - Rheumatoid arthritis [Unknown]
  - Arthralgia [Not Recovered/Not Resolved]
  - Drug ineffective [Not Recovered/Not Resolved]

NARRATIVE: CASE EVENT DATE: 20140805
